FAERS Safety Report 22297148 (Version 1)
Quarter: 2023Q2

REPORT INFORMATION
  Report Type: Report from Study
  Country: CA (occurrence: CA)
  Receive Date: 20230509
  Receipt Date: 20230509
  Transmission Date: 20230722
  Serious: Yes (Other)
  Sender: FDA-Public Use
  Company Number: CA-JNJFOC-20230430628

PATIENT
  Age: 39 Year
  Sex: Female
  Weight: 51 kg

DRUGS (2)
  1. STELARA [Suspect]
     Active Substance: USTEKINUMAB
     Indication: Colitis ulcerative
     Dosage: THE PATIENT RECEIVED 13TH INJECTION OF DOSE 90 MG AND PARTIAL MAYO COMPLETED
     Route: 058
     Dates: start: 20220331
  2. STELARA [Suspect]
     Active Substance: USTEKINUMAB

REACTIONS (4)
  - Haematochezia [Not Recovered/Not Resolved]
  - Gastrointestinal inflammation [Unknown]
  - General physical health deterioration [Unknown]
  - Frequent bowel movements [Unknown]

NARRATIVE: CASE EVENT DATE: 20230403
